FAERS Safety Report 16125679 (Version 1)
Quarter: 2019Q1

REPORT INFORMATION
  Report Type: Spontaneous
  Country: FR (occurrence: FR)
  Receive Date: 20190328
  Receipt Date: 20190328
  Transmission Date: 20190418
  Serious: Yes (Hospitalization)
  Sender: FDA-Public Use
  Company Number: FR-TEVA-2019-FR-1029568

PATIENT
  Age: 63 Year
  Sex: Female
  Weight: 49 kg

DRUGS (6)
  1. DUROGESIC [Concomitant]
     Active Substance: FENTANYL
     Route: 048
     Dates: start: 201808
  2. SERETIDE [Concomitant]
     Active Substance: FLUTICASONE PROPIONATE\SALMETEROL XINAFOATE
     Route: 055
     Dates: start: 201901
  3. DIAZEPAM. [Suspect]
     Active Substance: DIAZEPAM
     Indication: ANXIETY
     Dosage: NOT KNOWN
     Route: 048
     Dates: start: 20190211, end: 20190214
  4. ORAMORPH [Concomitant]
     Active Substance: MORPHINE SULFATE
     Route: 048
     Dates: start: 201808
  5. RETACRIT 30000 UI/0,75 ML, SOLUTION INJECTABLE EN SERINGUE PR?REMPLIE [Concomitant]
     Route: 042
     Dates: start: 20181221
  6. IPRATROPIUM (BROMURE D^) MONOHYDRATE [Concomitant]
     Route: 055
     Dates: start: 201901

REACTIONS (1)
  - Agranulocytosis [Recovered/Resolved]

NARRATIVE: CASE EVENT DATE: 20190214
